FAERS Safety Report 5135447-1 (Version None)
Quarter: 2006Q4

REPORT INFORMATION
  Report Type: 
  Country: None (occurrence: None)
  Receive Date: 20061026
  Receipt Date: 20061019
  Transmission Date: 20070319
  Serious: Yes (Other)
  Sender: FDA-Public Use
  Company Number: ES-GLAXOSMITHKLINE-B0443837A

PATIENT
  Age: 84 Year
  Sex: Female

DRUGS (2)
  1. SERETIDE [Suspect]
     Indication: BRONCHITIS
     Route: 055
  2. VENTOLIN [Suspect]
     Indication: BRONCHITIS
     Route: 065

REACTIONS (4)
  - ANGIONEUROTIC OEDEMA [None]
  - BRONCHOSPASM [None]
  - EYELID OEDEMA [None]
  - SNEEZING [None]
